FAERS Safety Report 18267541 (Version 1)
Quarter: 2020Q3

REPORT INFORMATION
  Report Type: Spontaneous
  Country: US (occurrence: US)
  Receive Date: 20200915
  Receipt Date: 20200915
  Transmission Date: 20201103
  Serious: Yes (Life-Threatening, Hospitalization)
  Sender: FDA-Public Use
  Company Number: None

PATIENT
  Age: 79 Year
  Sex: Female
  Weight: 67.6 kg

DRUGS (1)
  1. EVENITY [Suspect]
     Active Substance: ROMOSOZUMAB-AQQG
     Indication: OSTEOPOROSIS
     Route: 058
     Dates: start: 20200909, end: 20200909

REACTIONS (7)
  - Peripheral swelling [None]
  - Abdominal pain upper [None]
  - Abdominal pain [None]
  - Dyspnoea [None]
  - Constipation [None]
  - Troponin increased [None]
  - Acute myocardial infarction [None]

NARRATIVE: CASE EVENT DATE: 20200914
